FAERS Safety Report 4351292-9 (Version None)
Quarter: 2004Q2

REPORT INFORMATION
  Report Type: 
  Country: None (occurrence: None)
  Receive Date: 20040430
  Receipt Date: 20040430
  Transmission Date: 20050107
  Serious: Yes (Hospitalization)
  Sender: FDA-Public Use
  Company Number: None

PATIENT
  Age: 53 Year
  Sex: Female
  Weight: 78.9259 kg

DRUGS (1)
  1. CEFACLOR [Suspect]
     Indication: HYPERSENSITIVITY
     Dosage: 250 MG
     Dates: start: 20040415, end: 20040415

REACTIONS (2)
  - RASH [None]
  - THROAT TIGHTNESS [None]
